FAERS Safety Report 20438421 (Version 1)
Quarter: 2022Q1

REPORT INFORMATION
  Report Type: Spontaneous
  Country: GB (occurrence: GB)
  Receive Date: 20220207
  Receipt Date: 20220207
  Transmission Date: 20220423
  Serious: Yes (Hospitalization, Other)
  Sender: FDA-Public Use
  Company Number: None

PATIENT
  Age: 49 Year
  Sex: Female

DRUGS (1)
  1. METHOTREXATE SODIUM [Suspect]
     Active Substance: METHOTREXATE SODIUM

REACTIONS (7)
  - Mucosal inflammation [Unknown]
  - Mouth ulceration [Unknown]
  - Vaginal ulceration [Unknown]
  - Skin ulcer [Unknown]
  - Pain [Unknown]
  - Hepatic function abnormal [Unknown]
  - Inappropriate schedule of product administration [Unknown]
